FAERS Safety Report 11483206 (Version 1)
Quarter: 2015Q3

REPORT INFORMATION
  Report Type: Spontaneous
  Country: US (occurrence: US)
  Receive Date: 20150903
  Receipt Date: 20150903
  Transmission Date: 20151125
  Serious: No
  Sender: FDA-Public Use
  Company Number: US-ELI_LILLY_AND_COMPANY-US201205009644

PATIENT
  Sex: Male

DRUGS (4)
  1. CYMBALTA [Suspect]
     Active Substance: DULOXETINE HYDROCHLORIDE
     Dosage: 30 MG, QD
     Dates: start: 201203
  2. CYMBALTA [Suspect]
     Active Substance: DULOXETINE HYDROCHLORIDE
     Dosage: 20 MG, QD
  3. CYMBALTA [Suspect]
     Active Substance: DULOXETINE HYDROCHLORIDE
     Dosage: 60 MG, QD
  4. CYMBALTA [Suspect]
     Active Substance: DULOXETINE HYDROCHLORIDE
     Dosage: UNK, UNKNOWN

REACTIONS (8)
  - Drug withdrawal syndrome [Recovering/Resolving]
  - Hypoaesthesia [Recovering/Resolving]
  - Intentional product misuse [Not Recovered/Not Resolved]
  - Muscle spasms [Recovering/Resolving]
  - Confusional state [Recovering/Resolving]
  - Depression [Recovering/Resolving]
  - Paraesthesia [Recovering/Resolving]
  - Disorientation [Recovering/Resolving]
